FAERS Safety Report 17045904 (Version 1)
Quarter: 2019Q4

REPORT INFORMATION
  Report Type: Spontaneous
  Country: GB (occurrence: GB)
  Receive Date: 20191118
  Receipt Date: 20191118
  Transmission Date: 20200122
  Serious: Yes (Other)
  Sender: FDA-Public Use
  Company Number: GB-TEVA-2019-GB-1137931

PATIENT
  Age: 53 Year
  Sex: Male
  Weight: 92.07 kg

DRUGS (22)
  1. ORAMORPH [Concomitant]
     Active Substance: MORPHINE SULFATE
  2. FEXOFENADINE [Concomitant]
     Active Substance: FEXOFENADINE HYDROCHLORIDE
  3. RANITIDINE. [Concomitant]
     Active Substance: RANITIDINE
  4. PARACETAMOL [Concomitant]
     Active Substance: ACETAMINOPHEN
  5. DALTEPARIN SODIUM [Concomitant]
     Active Substance: DALTEPARIN SODIUM
  6. DEXCEL-PHARMA ISOSORBIDE MONONITRATE [Concomitant]
  7. ATAZANAVIR. [Concomitant]
     Active Substance: ATAZANAVIR
  8. NAPROXEN. [Concomitant]
     Active Substance: NAPROXEN
  9. BISOPROLOL FUMARATE. [Concomitant]
     Active Substance: BISOPROLOL FUMARATE
  10. CANDESARTAN. [Concomitant]
     Active Substance: CANDESARTAN
  11. RALTEGRAVIR. [Concomitant]
     Active Substance: RALTEGRAVIR
  12. CASSIA [Concomitant]
  13. TRUVADA [Concomitant]
     Active Substance: EMTRICITABINE\TENOFOVIR DISOPROXIL FUMARATE
  14. ACETYLSALICYLIC ACID [Concomitant]
     Active Substance: ASPIRIN
  15. SALBUTAMOL [Concomitant]
     Active Substance: ALBUTEROL
  16. PREGABALIN. [Suspect]
     Active Substance: PREGABALIN
     Indication: BACK PAIN
     Dosage: WITH WATER 75 MG
     Route: 048
     Dates: start: 20180515, end: 20180515
  17. PROCHLORPERAZINE. [Concomitant]
     Active Substance: PROCHLORPERAZINE
  18. CLOPIDOGREL [Concomitant]
     Active Substance: CLOPIDOGREL BISULFATE
  19. LACTULOSE. [Concomitant]
     Active Substance: LACTULOSE
  20. PRAVASTATIN. [Concomitant]
     Active Substance: PRAVASTATIN
  21. TRAMADOL. [Concomitant]
     Active Substance: TRAMADOL
  22. MAGNESIUM HYDROXIDE. [Concomitant]
     Active Substance: MAGNESIUM HYDROXIDE

REACTIONS (5)
  - Hallucination [Recovering/Resolving]
  - Psychotic disorder [Recovering/Resolving]
  - Tremor [Recovering/Resolving]
  - Affect lability [Unknown]
  - Feeling abnormal [Unknown]

NARRATIVE: CASE EVENT DATE: 20180515
